FAERS Safety Report 24135253 (Version 1)
Quarter: 2024Q3

REPORT INFORMATION
  Report Type: Report from Study
  Country: US (occurrence: US)
  Receive Date: 20240725
  Receipt Date: 20240725
  Transmission Date: 20241016
  Serious: Yes (Hospitalization)
  Sender: GILEAD
  Company Number: US-GILEAD-2024-0681520

PATIENT
  Sex: Female

DRUGS (1)
  1. AZTREONAM LYSINE [Suspect]
     Active Substance: AZTREONAM LYSINE
     Indication: Cystic fibrosis
     Dosage: 75 MG, TID (GIVE 75MG WITH NEBULIZER THREE TIMES DAILY - FOR 28 DAYS, THEN TAKE 28 DAYS OFF)
     Route: 055
     Dates: start: 20210603

REACTIONS (2)
  - Cystic fibrosis respiratory infection suppression [Unknown]
  - Product dose omission issue [Unknown]
